FAERS Safety Report 8404165-6 (Version None)
Quarter: 2012Q2

REPORT INFORMATION
  Report Type: 
  Country: None (occurrence: None)
  Receive Date: 20120601
  Receipt Date: 20120518
  Transmission Date: 20120825
  Serious: Yes (Other)
  Sender: FDA-Public Use
  Company Number: CHPA2012US011362

PATIENT
  Age: 49 Year

DRUGS (2)
  1. DRUG THERAPY NOS [Concomitant]
     Indication: SMOKING CESSATION THERAPY
     Dosage: UNK, UNK
  2. HABITROL [Suspect]
     Indication: SMOKING CESSATION THERAPY
     Dosage: 21 MG, UNK
     Route: 062

REACTIONS (7)
  - BLOOD PRESSURE INCREASED [None]
  - BLOOD THYROID STIMULATING HORMONE DECREASED [None]
  - BLOOD GLUCOSE INCREASED [None]
  - CONCOMITANT DISEASE AGGRAVATED [None]
  - BLOOD CHOLESTEROL INCREASED [None]
  - OVERDOSE [None]
  - TREATMENT NONCOMPLIANCE [None]
